FAERS Safety Report 7950335-0 (Version None)
Quarter: 2011Q4

REPORT INFORMATION
  Report Type: 
  Country: None (occurrence: None)
  Receive Date: 20111130
  Receipt Date: 20111123
  Transmission Date: 20120403
  Serious: Yes (Life-Threatening, Hospitalization)
  Sender: FDA-Public Use
  Company Number: US-ASTRAZENECA-2011SE71894

PATIENT
  Age: 17 Year
  Sex: Female

DRUGS (7)
  1. RETIN-A MICRO 0.04% GEL [Concomitant]
     Indication: ACNE
     Dosage: APPLY TO FACE AT NIGHT
  2. PROZAC [Concomitant]
     Indication: DEPRESSION
     Route: 048
  3. LAMICTAL [Concomitant]
     Indication: AFFECTIVE DISORDER
     Route: 048
  4. LAMICTAL [Concomitant]
     Route: 048
  5. SEROQUEL XR [Suspect]
     Indication: AFFECTIVE DISORDER
     Dosage: 400 MG AT 7 PM
     Route: 048
  6. LAMICTAL [Concomitant]
     Route: 048
  7. MINOCYCLINE HCL [Concomitant]
     Indication: ACNE
     Route: 048

REACTIONS (11)
  - EATING DISORDER [None]
  - TREATMENT NONCOMPLIANCE [None]
  - AFFECTIVE DISORDER [None]
  - BIPOLAR II DISORDER [None]
  - SUICIDE ATTEMPT [None]
  - ATTENTION-SEEKING BEHAVIOUR [None]
  - BORDERLINE PERSONALITY DISORDER [None]
  - MOOD SWINGS [None]
  - ANXIETY [None]
  - THINKING ABNORMAL [None]
  - IRRITABILITY [None]
